FAERS Safety Report 24320287 (Version 1)
Quarter: 2024Q3

REPORT INFORMATION
  Report Type: Report from Study
  Country: GB (occurrence: GB)
  Receive Date: 20240914
  Receipt Date: 20240914
  Transmission Date: 20241016
  Serious: Yes (Other)
  Sender: ABBVIE
  Company Number: GB-ABBVIE-5919491

PATIENT
  Sex: Male

DRUGS (1)
  1. SKYRIZI [Suspect]
     Active Substance: RISANKIZUMAB-RZAA
     Indication: Crohn^s disease
     Dosage: 1.00 EA ?FORM STRENGTH: 360 MILLIGRAM
     Route: 058

REACTIONS (1)
  - Colon neoplasm [Not Recovered/Not Resolved]

NARRATIVE: CASE EVENT DATE: 20240101
